FAERS Safety Report 7345266-3 (Version None)
Quarter: 2011Q1

REPORT INFORMATION
  Report Type: 
  Country: None (occurrence: None)
  Receive Date: 20110310
  Receipt Date: 20110302
  Transmission Date: 20110831
  Serious: Yes (Death)
  Sender: FDA-Public Use
  Company Number: CA-ELI_LILLY_AND_COMPANY-CA201103001006

PATIENT
  Age: 34 Year
  Sex: Female

DRUGS (5)
  1. CYMBALTA [Suspect]
     Dosage: 90 MG, UNKNOWN
     Dates: start: 20090728, end: 20090823
  2. REMERON [Concomitant]
     Dosage: 15 MG, UNK
  3. QUETIAPINE [Concomitant]
     Dosage: 50 MG, UNK
  4. CYMBALTA [Suspect]
     Indication: MAJOR DEPRESSION
     Dosage: 60 MG, UNKNOWN
     Dates: end: 20090727
  5. CYMBALTA [Suspect]
     Dosage: 120 MG, UNKNOWN
     Dates: start: 20090824

REACTIONS (1)
  - DEATH [None]
